FAERS Safety Report 7835287-6 (Version None)
Quarter: 2011Q4

REPORT INFORMATION
  Report Type: 
  Country: None (occurrence: None)
  Receive Date: 20111024
  Receipt Date: 20111019
  Transmission Date: 20120403
  Serious: Yes (Death)
  Sender: FDA-Public Use
  Company Number: CL-ABBOTT-11P-034-0866736-00

PATIENT
  Age: 76 Year
  Sex: Male

DRUGS (1)
  1. ZEMPLAR [Suspect]
     Indication: BLOOD PARATHYROID HORMONE ABNORMAL
     Route: 042

REACTIONS (1)
  - COLON CANCER METASTATIC [None]
